FAERS Safety Report 9230082 (Version 1)
Quarter: 2013Q1

REPORT INFORMATION
  Report Type: Spontaneous
  Country: US (occurrence: None)
  Receive Date: 20121023
  Receipt Date: 20121023
  Transmission Date: 20140127
  Serious: Yes (Hospitalization)
  Sender: FDA-Public Use
  Company Number: 2012AL000077

PATIENT
  Age: 76 Year
  Sex: Male

DRUGS (1)
  1. FOLOTYN [Suspect]
     Indication: ANGIOIMMUNOBLASTIC T-CELL LYMPHOMA
     Route: 042
     Dates: start: 20120724, end: 20120820

REACTIONS (5)
  - Neutropenia [None]
  - Dehydration [None]
  - Mucosal inflammation [None]
  - Platelet count decreased [None]
  - Anaemia [None]
